FAERS Safety Report 11496243 (Version 3)
Quarter: 2016Q3

REPORT INFORMATION
  Report Type: Report from Study
  Country: US (occurrence: US)
  Receive Date: 20150911
  Receipt Date: 20160912
  Transmission Date: 20161109
  Serious: Yes (Hospitalization)
  Sender: FDA-Public Use
  Company Number: US-ACTELION-A-NJ2015-123708

PATIENT
  Age: 71 Year
  Sex: Female

DRUGS (13)
  1. PLAVIX [Concomitant]
     Active Substance: CLOPIDOGREL BISULFATE
  2. LASIX [Concomitant]
     Active Substance: FUROSEMIDE
  3. BENICAR [Concomitant]
     Active Substance: OLMESARTAN MEDOXOMIL
  4. NORVASC [Concomitant]
     Active Substance: AMLODIPINE BESYLATE
  5. METOPROLOL. [Concomitant]
     Active Substance: METOPROLOL
  6. CRESTOR [Concomitant]
     Active Substance: ROSUVASTATIN CALCIUM
  7. RIOCIGUAT [Concomitant]
     Active Substance: RIOCIGUAT
  8. NOVOLOG [Concomitant]
     Active Substance: INSULIN ASPART
  9. JANUVIA [Concomitant]
     Active Substance: SITAGLIPTIN PHOSPHATE
  10. TRACLEER [Suspect]
     Active Substance: BOSENTAN
     Indication: PULMONARY ARTERIAL HYPERTENSION
     Dosage: 125 MG, BID
     Route: 048
     Dates: start: 20120702
  11. ULORIC [Concomitant]
     Active Substance: FEBUXOSTAT
  12. CLONIDINE. [Concomitant]
     Active Substance: CLONIDINE
  13. OMEPRAZOLE. [Concomitant]
     Active Substance: OMEPRAZOLE

REACTIONS (6)
  - Vascular cauterisation [Unknown]
  - Dysarthria [Recovered/Resolved]
  - Gastrointestinal haemorrhage [Recovered/Resolved]
  - Facial paralysis [Recovered/Resolved]
  - Hypoaesthesia [Recovered/Resolved]
  - Transfusion [Recovering/Resolving]

NARRATIVE: CASE EVENT DATE: 20150824
